FAERS Safety Report 7351983-1 (Version None)
Quarter: 2011Q1

REPORT INFORMATION
  Report Type: 
  Country: None (occurrence: None)
  Receive Date: 20110315
  Receipt Date: 20110311
  Transmission Date: 20110831
  Serious: No
  Sender: FDA-Public Use
  Company Number: US-PFIZER INC-2011054716

PATIENT

DRUGS (3)
  1. ZYVOX [Suspect]
     Dosage: UNK
  2. FENTANYL [Suspect]
     Dosage: UNK
  3. SEROQUEL [Suspect]
     Dosage: UNK

REACTIONS (1)
  - RASH [None]
